FAERS Safety Report 9885340 (Version 1)
Quarter: 2014Q1

REPORT INFORMATION
  Report Type: Spontaneous
  Country: US (occurrence: US)
  Receive Date: 20140210
  Receipt Date: 20140210
  Transmission Date: 20141002
  Serious: No
  Sender: FDA-Public Use
  Company Number: US-PFIZER INC-2014037397

PATIENT
  Age: 59 Year
  Sex: Female
  Weight: 65.8 kg

DRUGS (4)
  1. GABAPENTIN [Suspect]
     Indication: NEURALGIA
     Dosage: TOTAL 3000MG IN A DAY
     Dates: start: 2008, end: 2009
  2. GABAPENTIN [Suspect]
     Indication: BURNING SENSATION
  3. GABAPENTIN [Suspect]
     Indication: FIBROMYALGIA
  4. ZOCOR [Concomitant]
     Indication: BLOOD CHOLESTEROL INCREASED
     Dosage: 10 MG, 1X/DAY

REACTIONS (2)
  - Off label use [Unknown]
  - Drug ineffective [Unknown]
